FAERS Safety Report 18261899 (Version 1)
Quarter: 2020Q3

REPORT INFORMATION
  Report Type: Spontaneous
  Country: FR (occurrence: FR)
  Receive Date: 20200914
  Receipt Date: 20200914
  Transmission Date: 20201103
  Serious: Yes (Other)
  Sender: FDA-Public Use
  Company Number: FR-TEVA-2020-FR-1826172

PATIENT
  Age: 21 Year
  Sex: Female

DRUGS (2)
  1. DIAZEPAM. [Suspect]
     Active Substance: DIAZEPAM
     Indication: ANXIETY
     Dosage: 10 MG
     Route: 048
     Dates: start: 20200815, end: 20200816
  2. SOLIAN 200 MG, COMPRIME SECABLE [Suspect]
     Active Substance: AMISULPRIDE
     Dosage: 200 MG
     Route: 048
     Dates: start: 20200815, end: 20200816

REACTIONS (1)
  - Face oedema [Recovering/Resolving]

NARRATIVE: CASE EVENT DATE: 20200816
